FAERS Safety Report 11709337 (Version 1)
Quarter: 2015Q4

REPORT INFORMATION
  Report Type: Spontaneous
  Country: US (occurrence: US)
  Receive Date: 20151104
  Receipt Date: 20151104
  Transmission Date: 20160304
  Serious: No
  Sender: FDA-Public Use
  Company Number: US-ELI_LILLY_AND_COMPANY-US201103005468

PATIENT
  Sex: Male

DRUGS (1)
  1. FORTEO [Suspect]
     Active Substance: TERIPARATIDE
     Indication: OSTEOPOROSIS
     Dosage: 20 UG, DAILY (1/D)
     Dates: start: 201101

REACTIONS (4)
  - Paranoia [Recovering/Resolving]
  - Body temperature increased [Recovering/Resolving]
  - Hyperhidrosis [Recovering/Resolving]
  - Feeling jittery [Not Recovered/Not Resolved]
